FAERS Safety Report 6603137-1 (Version None)
Quarter: 2010Q1

REPORT INFORMATION
  Report Type: 
  Country: None (occurrence: None)
  Receive Date: 20100226
  Receipt Date: 20100217
  Transmission Date: 20100710
  Serious: Yes (Other)
  Sender: FDA-Public Use
  Company Number: US-PFIZER INC-2010021100

PATIENT
  Sex: Male
  Weight: 77.098 kg

DRUGS (4)
  1. LIPITOR [Suspect]
     Indication: CORONARY ARTERY BYPASS
     Dosage: 40 MG, 1X/DAY
     Route: 048
     Dates: start: 19950101, end: 20100101
  2. LISINOPRIL [Concomitant]
     Indication: HYPERTENSION
     Dosage: 10 MG, 1X/DAY
     Route: 048
  3. METOPROLOL [Concomitant]
     Indication: HYPERTENSION
     Dosage: 25 MG, 2X/DAY
     Route: 048
  4. ACETYLSALICYLIC ACID [Concomitant]
     Dosage: UNK MG, UNK
     Route: 048

REACTIONS (2)
  - PAIN IN EXTREMITY [None]
  - THROMBOSIS PROPHYLAXIS [None]
